FAERS Safety Report 5158280-3 (Version None)
Quarter: 2006Q4

REPORT INFORMATION
  Report Type: 
  Country: None (occurrence: None)
  Receive Date: 20061121
  Receipt Date: 20061121
  Transmission Date: 20070319
  Serious: No
  Sender: FDA-Public Use
  Company Number: None

PATIENT
  Sex: Male
  Weight: 70.3075 kg

DRUGS (1)
  1. ZOLOFT [Suspect]
     Indication: DEPRESSION
     Dosage: 50 MG 1/DAY PO
     Route: 048
     Dates: start: 20041001, end: 20050907

REACTIONS (4)
  - ANORGASMIA [None]
  - EJACULATION DISORDER [None]
  - ORGASM ABNORMAL [None]
  - SEMEN VOLUME DECREASED [None]
